FAERS Safety Report 6688177-9 (Version None)
Quarter: 2010Q2

REPORT INFORMATION
  Report Type: 
  Country: None (occurrence: None)
  Receive Date: 20100420
  Receipt Date: 20100415
  Transmission Date: 20101027
  Serious: Yes (Death, Hospitalization, Other)
  Sender: FDA-Public Use
  Company Number: JP-JNJFOC-20090502650

PATIENT
  Sex: Male
  Weight: 69 kg

DRUGS (26)
  1. FENTANYL [Suspect]
     Indication: PAIN
     Route: 062
  2. FENTANYL [Suspect]
     Route: 062
  3. FENTANYL [Suspect]
     Route: 062
  4. FENTANYL [Suspect]
     Route: 062
  5. FENTANYL [Suspect]
     Route: 062
  6. FENTANYL [Suspect]
     Route: 062
  7. FENTANYL [Suspect]
     Route: 062
  8. FENTANYL [Suspect]
     Route: 062
  9. FENTANYL [Suspect]
     Route: 062
  10. FENTANYL [Suspect]
     Route: 062
  11. FENTANYL [Suspect]
     Route: 062
  12. FENTANYL [Suspect]
     Route: 062
  13. FENTANYL [Suspect]
     Route: 062
  14. FENTANYL [Suspect]
     Route: 062
  15. FENTANYL [Suspect]
     Dosage: DOSE: 1 DF
     Route: 062
  16. FENTANYL [Suspect]
     Route: 062
  17. MAGNESIUM OXIDE [Concomitant]
     Indication: CONSTIPATION
     Route: 048
  18. PURSENNID [Concomitant]
     Indication: CONSTIPATION
     Route: 048
  19. SENNOSIDE (UNSPECIFIED) [Concomitant]
     Indication: CONSTIPATION
     Route: 048
  20. CLONAZEPAM [Concomitant]
     Indication: PAIN
     Route: 048
  21. BENZALIN [Concomitant]
     Indication: PAIN
     Route: 048
  22. GABAPEN [Concomitant]
     Indication: PAIN
     Route: 048
  23. AMITRIPTYLINE HCL [Concomitant]
     Indication: PAIN
     Route: 048
  24. BROTIZOLAM [Concomitant]
     Indication: PAIN
     Route: 048
  25. MYSLEE [Concomitant]
     Indication: PAIN
     Route: 048
  26. MORPHINE [Concomitant]
     Indication: PAIN
     Route: 048

REACTIONS (3)
  - MELAENA [None]
  - PANCREATIC CARCINOMA [None]
  - SOMNOLENCE [None]
